FAERS Safety Report 19580815 (Version 3)
Quarter: 2021Q3

REPORT INFORMATION
  Report Type: Report from Study
  Country: US (occurrence: US)
  Receive Date: 20210720
  Receipt Date: 20210803
  Transmission Date: 20211014
  Serious: Yes (Hospitalization, Other)
  Sender: FDA-Public Use
  Company Number: US-GLAXOSMITHKLINE-US2020AMR224591

PATIENT
  Sex: Female

DRUGS (5)
  1. NIRAPARIB [Suspect]
     Active Substance: NIRAPARIB
     Dosage: 100 MG, QD
     Route: 048
  2. NIRAPARIB [Suspect]
     Active Substance: NIRAPARIB
     Indication: OVARIAN CANCER
     Dosage: 200 MG, QD
     Dates: start: 20201108
  3. NIRAPARIB [Suspect]
     Active Substance: NIRAPARIB
     Dosage: 100 MG, QD
     Route: 048
     Dates: start: 20210127
  4. NIRAPARIB [Suspect]
     Active Substance: NIRAPARIB
     Dosage: 100 MG, QD
     Dates: start: 20201227
  5. NIRAPARIB [Suspect]
     Active Substance: NIRAPARIB
     Dosage: 100 MG, QD (PM WITH FOOD)
     Route: 048

REACTIONS (11)
  - Intestinal obstruction [Not Recovered/Not Resolved]
  - Heart rate increased [Unknown]
  - Diarrhoea [Recovered/Resolved]
  - Illness [Unknown]
  - Abdominal pain upper [Unknown]
  - Computerised tomogram abnormal [Not Recovered/Not Resolved]
  - Platelet count decreased [Unknown]
  - Blood pressure increased [Unknown]
  - Vomiting [Unknown]
  - Anaemia [Unknown]
  - Constipation [Not Recovered/Not Resolved]
